FAERS Safety Report 13935456 (Version 1)
Quarter: 2017Q3

REPORT INFORMATION
  Report Type: Report from Study
  Country: AR (occurrence: AR)
  Receive Date: 20170905
  Receipt Date: 20170905
  Transmission Date: 20171127
  Serious: Yes (Other)
  Sender: FDA-Public Use
  Company Number: PHHY2017AR129918

PATIENT
  Age: 81 Year
  Sex: Male

DRUGS (2)
  1. EXFORGE [Suspect]
     Active Substance: AMLODIPINE BESYLATE\VALSARTAN
     Indication: HYPERTENSION
     Dosage: 1.5 DF, QD (LESS THAN A MONTH AGO)
     Route: 065
     Dates: start: 201708
  2. EXFORGE [Suspect]
     Active Substance: AMLODIPINE BESYLATE\VALSARTAN
     Indication: PRODUCT USED FOR UNKNOWN INDICATION
     Dosage: (AMLODIPINE 5/ VALSARTAN 160, UNITS NOT PROVIDED), 7 OR 8 YEAR AGO
     Route: 065

REACTIONS (7)
  - Peripheral swelling [Recovering/Resolving]
  - Abdominal discomfort [Unknown]
  - Wrong technique in product usage process [Unknown]
  - Syncope [Recovering/Resolving]
  - Viral infection [Unknown]
  - Vomiting [Unknown]
  - Drug prescribing error [Unknown]

NARRATIVE: CASE EVENT DATE: 201708
